FAERS Safety Report 16687142 (Version 2)
Quarter: 2019Q3

REPORT INFORMATION
  Report Type: Spontaneous
  Country: JP (occurrence: JP)
  Receive Date: 20190809
  Receipt Date: 20190829
  Transmission Date: 20191004
  Serious: Yes (Hospitalization)
  Sender: FDA-Public Use
  Company Number: JP-ELI_LILLY_AND_COMPANY-JP201905004393

PATIENT
  Sex: Male
  Weight: 73 kg

DRUGS (8)
  1. GLIMEPIRIDE. [Concomitant]
     Active Substance: GLIMEPIRIDE
  2. VOGLIBOSE [Concomitant]
     Active Substance: VOGLIBOSE
  3. BAYASPIRIN [Concomitant]
     Active Substance: ASPIRIN
  4. METFORMIN HYDROCHLORIDE. [Concomitant]
     Active Substance: METFORMIN HYDROCHLORIDE
  5. AMLODIPINE [Concomitant]
     Active Substance: AMLODIPINE BESYLATE
  6. TELMISARTAN. [Concomitant]
     Active Substance: TELMISARTAN
  7. TRULICITY [Suspect]
     Active Substance: DULAGLUTIDE
     Indication: DIABETES MELLITUS
     Dosage: UNK
     Route: 058
     Dates: start: 20190222
  8. BEZAFIBRATE [Concomitant]
     Active Substance: BEZAFIBRATE

REACTIONS (2)
  - Palpitations [Unknown]
  - Calculus urinary [Unknown]
